FAERS Safety Report 8676258 (Version 2)
Quarter: 2013Q4

REPORT INFORMATION
  Report Type: Spontaneous
  Country: ES (occurrence: ES)
  Receive Date: 20120720
  Receipt Date: 20131105
  Transmission Date: 20140711
  Serious: Yes (Other)
  Sender: FDA-Public Use
  Company Number: ES-MSD-1207ESP005414

PATIENT
  Age: 61 Year
  Sex: Female

DRUGS (2)
  1. FOSAMAX 10MG [Suspect]
     Dosage: UNK
     Route: 048
     Dates: start: 2009, end: 2009
  2. DEPRELIO (AMITRIPTYLINE HYDROCHLORIDE) [Concomitant]
     Dosage: UNK
     Route: 048
     Dates: start: 1989

REACTIONS (3)
  - Tooth loss [Recovered/Resolved]
  - Osteonecrosis of jaw [Recovered/Resolved with Sequelae]
  - Bone loss [Recovered/Resolved with Sequelae]
